FAERS Safety Report 9061508 (Version 1)
Quarter: 2013Q1

REPORT INFORMATION
  Report Type: Spontaneous
  Country: US (occurrence: None)
  Receive Date: 20130211
  Receipt Date: 20130211
  Transmission Date: 20140127
  Serious: Yes (Hospitalization)
  Sender: FDA-Public Use
  Company Number: None

PATIENT
  Sex: Female
  Weight: 20.5 kg

DRUGS (5)
  1. ONCASPAR [Suspect]
  2. CYTARABINE [Suspect]
  3. DEXAMETHASONE [Suspect]
  4. METHOTREXATE [Suspect]
  5. VINCRISTINE SULFATE [Suspect]

REACTIONS (13)
  - Asthenia [None]
  - Rash pustular [None]
  - Lethargy [None]
  - Fatigue [None]
  - Diabetic ketoacidosis [None]
  - Alpha haemolytic streptococcal infection [None]
  - Staphylococcal infection [None]
  - Escherichia sepsis [None]
  - Dehydration [None]
  - Gait disturbance [None]
  - Tachycardia [None]
  - Tachypnoea [None]
  - Cellulitis [None]
